FAERS Safety Report 4299096-X (Version None)
Quarter: 2004Q1

REPORT INFORMATION
  Report Type: 
  Country: None (occurrence: None)
  Receive Date: 20040217
  Receipt Date: 20040209
  Transmission Date: 20041129
  Serious: No
  Sender: FDA-Public Use
  Company Number: 7357

PATIENT
  Age: 43 Year
  Sex: Female

DRUGS (4)
  1. INFLIXIMAB [Suspect]
     Indication: RHEUMATOID ARTHRITIS
     Dosage: 180 MG , IV
     Route: 042
     Dates: start: 20020731, end: 20021106
  2. METHOTREXATE [Suspect]
     Dosage: 10 MG, PO
     Route: 048
     Dates: start: 19940101
  3. SULFASALAZINE [Concomitant]
  4. LEFLUNOMIDE [Concomitant]

REACTIONS (16)
  - ANOREXIA [None]
  - ANTINUCLEAR ANTIBODY POSITIVE [None]
  - ARTHRITIS [None]
  - ASTHENIA [None]
  - CHEST PAIN [None]
  - CONDITION AGGRAVATED [None]
  - HEADACHE [None]
  - LABORATORY TEST ABNORMAL [None]
  - LUPUS-LIKE SYNDROME [None]
  - PHARYNGITIS [None]
  - PYREXIA [None]
  - RASH ERYTHEMATOUS [None]
  - RED BLOOD CELL COUNT INCREASED [None]
  - RHEUMATOID FACTOR INCREASED [None]
  - VIRAL INFECTION [None]
  - WEIGHT DECREASED [None]
